FAERS Safety Report 5692569-4 (Version None)
Quarter: 2008Q2

REPORT INFORMATION
  Report Type: 
  Country: None (occurrence: None)
  Receive Date: 20080401
  Receipt Date: 20080317
  Transmission Date: 20081010
  Serious: Yes (Death, Hospitalization, Other)
  Sender: FDA-Public Use
  Company Number: 2008BI003548

PATIENT
  Age: 56 Year
  Sex: Female

DRUGS (17)
  1. TYSABRI [Suspect]
     Indication: MULTIPLE SCLEROSIS
     Dosage: 300 MG; QM; IV
     Route: 042
     Dates: start: 20070919, end: 20080114
  2. METHADONE HCL [Concomitant]
  3. AMITIZA [Concomitant]
  4. VICODIN [Concomitant]
  5. FLAGYL [Concomitant]
  6. CEPHULAC [Concomitant]
  7. DEPAKOTE [Concomitant]
  8. RILUTEK [Concomitant]
  9. DETROL LA [Concomitant]
  10. GLUCOPHAGE [Concomitant]
  11. HYTRIN [Concomitant]
  12. NEURONTIN [Concomitant]
  13. ZYPREXA [Concomitant]
  14. KLONOPIN [Concomitant]
  15. LIORESAL [Concomitant]
  16. CLARITIN [Concomitant]
  17. HALDOL [Concomitant]

REACTIONS (8)
  - ANXIETY [None]
  - ASPHYXIA [None]
  - ASTHENIA [None]
  - BLOOD GLUCOSE INCREASED [None]
  - DECUBITUS ULCER [None]
  - OSTEOMYELITIS [None]
  - UNRESPONSIVE TO STIMULI [None]
  - URINARY TRACT INFECTION [None]
